FAERS Safety Report 9353738 (Version 1)
Quarter: 2013Q2

REPORT INFORMATION
  Report Type: Spontaneous
  Country: US (occurrence: US)
  Receive Date: 20130618
  Receipt Date: 20130618
  Transmission Date: 20140414
  Serious: No
  Sender: FDA-Public Use
  Company Number: US-ROXANE LABORATORIES, INC.-2013-RO-00909RO

PATIENT
  Age: 70 Year
  Sex: Female

DRUGS (1)
  1. CLOTRIMAZOLE [Suspect]
     Indication: CANDIDA INFECTION
     Dosage: 30 MG
     Route: 048
     Dates: start: 20130602

REACTIONS (3)
  - Pruritus [Not Recovered/Not Resolved]
  - Dizziness [Recovered/Resolved]
  - Product quality issue [Unknown]
